FAERS Safety Report 11087711 (Version 1)
Quarter: 2015Q2

REPORT INFORMATION
  Report Type: Spontaneous
  Country: None (occurrence: None)
  Receive Date: 20150501
  Receipt Date: 20150501
  Transmission Date: 20150821
  Serious: No
  Sender: FDA-Public Use
  Company Number: None

PATIENT
  Age: 62 Year
  Sex: Male
  Weight: 81.65 kg

DRUGS (7)
  1. AMBIEN [Concomitant]
     Active Substance: ZOLPIDEM TARTRATE
  2. DULOXETINE [Suspect]
     Active Substance: DULOXETINE
     Indication: NEUROPATHY PERIPHERAL
     Route: 048
     Dates: start: 20141001, end: 20150430
  3. COENZYME Q-10 [Concomitant]
  4. NORVIR [Concomitant]
     Active Substance: RITONAVIR
  5. REYATAZ [Concomitant]
     Active Substance: ATAZANAVIR SULFATE
  6. DULOXETINE [Suspect]
     Active Substance: DULOXETINE
     Indication: MAJOR DEPRESSION
     Route: 048
     Dates: start: 20141001, end: 20150430
  7. MULTIVITAMIN (DAILY) [Concomitant]

REACTIONS (1)
  - Libido increased [None]

NARRATIVE: CASE EVENT DATE: 20150401
